FAERS Safety Report 6311364-6 (Version None)
Quarter: 2009Q3

REPORT INFORMATION
  Report Type: 
  Country: None (occurrence: None)
  Receive Date: 20090817
  Receipt Date: 20090805
  Transmission Date: 20100115
  Serious: Yes (Hospitalization, Other)
  Sender: FDA-Public Use
  Company Number: US-ELI_LILLY_AND_COMPANY-US200908002123

PATIENT
  Sex: Female

DRUGS (2)
  1. GEMZAR [Suspect]
     Indication: CERVIX CARCINOMA
     Dosage: 2000 MG, UNK
     Dates: start: 20090611
  2. CISPLATIN [Concomitant]
     Indication: CERVIX CARCINOMA
     Dosage: 60 MG, UNK
     Dates: start: 20090611

REACTIONS (5)
  - ANAEMIA [None]
  - LYMPHOCYTE PERCENTAGE DECREASED [None]
  - NEUTROPHIL PERCENTAGE INCREASED [None]
  - THROMBOCYTOPENIA [None]
  - WHITE BLOOD CELL COUNT INCREASED [None]
